FAERS Safety Report 7108860-0 (Version None)
Quarter: 2010Q4

REPORT INFORMATION
  Report Type: 
  Country: None (occurrence: None)
  Receive Date: 20101117
  Receipt Date: 20101109
  Transmission Date: 20110411
  Serious: Yes (Other)
  Sender: FDA-Public Use
  Company Number: US-ABBOTT-10P-163-0684799-00

PATIENT
  Sex: Male
  Weight: 79.904 kg

DRUGS (4)
  1. NIASPAN [Suspect]
     Indication: HIGH DENSITY LIPOPROTEIN DECREASED
     Dates: start: 20101019, end: 20101022
  2. NIASPAN [Suspect]
     Indication: LOW DENSITY LIPOPROTEIN INCREASED
  3. CRESTOR [Concomitant]
     Indication: BLOOD PRESSURE
  4. BLOOD PRESSURE MEDICINE NAMENOT SPECIFIED [Concomitant]
     Indication: BLOOD PRESSURE

REACTIONS (5)
  - ERYTHEMA [None]
  - HYPERSENSITIVITY [None]
  - PYREXIA [None]
  - SWELLING [None]
  - URTICARIA [None]
